FAERS Safety Report 4891962-7 (Version None)
Quarter: 2006Q1

REPORT INFORMATION
  Report Type: 
  Country: None (occurrence: None)
  Receive Date: 20060123
  Receipt Date: 20060106
  Transmission Date: 20060701
  Serious: Yes (Death, Hospitalization)
  Sender: FDA-Public Use
  Company Number: JP_051007814

PATIENT
  Age: 66 Year
  Sex: Male
  Weight: 69 kg

DRUGS (24)
  1. GEMZAR [Suspect]
     Indication: NON-SMALL CELL LUNG CANCER STAGE IIIB
     Dosage: 1700 MG, OTHER, INTRAVENOUS
     Route: 042
     Dates: start: 20050927, end: 20051004
  2. GEMZAR [Suspect]
  3. NAVELBINE [Concomitant]
  4. SODIUM CHLORIDE 0.9% [Concomitant]
  5. AZASETRON HYDROCHLORIDE (AZASETRON HYDROCHLORIDE) [Concomitant]
  6. DECADRON [Concomitant]
  7. NEU-UP (NARTOGRASTIM) [Concomitant]
  8. SOLULACT (CALCIUM CHLORIDE DIHYDRATE, POTASSIUM CHLORIDE, SODIUM CHLOR [Concomitant]
  9. SOLDEM 3A (CARBOHYDRATES NOS, POTASSIUM CHLORIDE, SODIUM CHLORIDE, SOD [Concomitant]
  10. OMEPRAZOLE [Concomitant]
  11. BOSMIN (EPINEPHRINE HYDROCHLORIDE) [Concomitant]
  12. ALEVIATIN FOR INJECTION (PHENYTOIN SODIUM) [Concomitant]
  13. DOPAMINE HYDROCHLORIDE [Concomitant]
  14. SODIUM BICARBONATE [Concomitant]
  15. AMBROXOL HYDROCHLORIDE (AMBROXOL HYDROCHLORIDE) [Concomitant]
  16. LANSOPRAZOLE [Concomitant]
  17. UNIPHYL [Concomitant]
  18. CODEINE PHOSPHATE (CODEINE PHOSPHATE) [Concomitant]
  19. PREDNISOLONE [Concomitant]
  20. ALFAROL (ALFACALCIDOL) [Concomitant]
  21. BAKUMONDOUTO (HERBAL EXTRACTS NOS) [Concomitant]
  22. BUFFERIN /JPN/ (ACETYLSALICYLIC ACID, ALUMINIUM GLYCINATE) [Concomitant]
  23. MAGNESIUM OXIDE (MAGNESIUM OXIDE) [Concomitant]
  24. NIZORAL /BEL/ (KETOCONAZOLE) [Concomitant]

REACTIONS (7)
  - CARDIAC TAMPONADE [None]
  - CARDIO-RESPIRATORY ARREST [None]
  - DEPRESSED LEVEL OF CONSCIOUSNESS [None]
  - DYSPHORIA [None]
  - FALL [None]
  - PANCREATITIS [None]
  - TONIC CONVULSION [None]
